FAERS Safety Report 10175509 (Version 3)
Quarter: 2017Q1

REPORT INFORMATION
  Report Type: Report from Study
  Country: US (occurrence: US)
  Receive Date: 20140516
  Receipt Date: 20170207
  Transmission Date: 20170428
  Serious: Yes (Other)
  Sender: FDA-Public Use
  Company Number: US-ROCHE-1399195

PATIENT

DRUGS (2)
  1. BEVACIZUMAB [Suspect]
     Active Substance: BEVACIZUMAB
     Indication: RETINAL DISORDER
     Dosage: 1.25 MG/0.05 ML VIA THE PARS PLANA USING A 30- OR 32-GAUGE HALF-INCH NEEDLE
     Route: 050
  2. BEVACIZUMAB [Suspect]
     Active Substance: BEVACIZUMAB
     Indication: CHOROIDITIS

REACTIONS (3)
  - Retinal detachment [Unknown]
  - Off label use [Unknown]
  - Ocular hypertension [Unknown]
